FAERS Safety Report 9817648 (Version 1)
Quarter: 2013Q4

REPORT INFORMATION
  Report Type: Spontaneous
  Country: US (occurrence: None)
  Receive Date: 20131223
  Receipt Date: 20131223
  Transmission Date: 20140711
  Serious: Yes (Other)
  Sender: FDA-Public Use
  Company Number: 220193

PATIENT
  Age: 89 Year
  Sex: Female

DRUGS (5)
  1. PICATO GEL [Suspect]
     Indication: PRECANCEROUS CELLS PRESENT
     Route: 061
     Dates: start: 20130110, end: 20130110
  2. COUMADIN (WARFRIN SODIUIM) [Concomitant]
  3. DIGOXIN (DIGOXIN) [Concomitant]
  4. VITAMIN D (VITAMIN D NOS) [Concomitant]
  5. MULTIVITAMIN (MULTIVITAMIN) [Concomitant]

REACTIONS (5)
  - Application site pain [None]
  - Application site pustules [None]
  - Off label use [None]
  - Off label use [None]
  - Incorrect drug administration duration [None]
